FAERS Safety Report 8232415-8 (Version None)
Quarter: 2012Q1

REPORT INFORMATION
  Report Type: 
  Country: None (occurrence: None)
  Receive Date: 20120320
  Receipt Date: 20120306
  Transmission Date: 20120608
  Serious: Yes (Life-Threatening, Hospitalization)
  Sender: FDA-Public Use
  Company Number: 2011SP048229

PATIENT
  Age: 29 Year
  Sex: Female
  Weight: 70.3075 kg

DRUGS (1)
  1. NUVARING [Suspect]
     Indication: CONTRACEPTION
     Dates: start: 20090101, end: 20100303

REACTIONS (17)
  - BACK PAIN [None]
  - WEIGHT INCREASED [None]
  - OVARIAN CYST [None]
  - HEADACHE [None]
  - COAGULOPATHY [None]
  - PULMONARY EMBOLISM [None]
  - THROMBOSIS [None]
  - INJURY [None]
  - DYSMENORRHOEA [None]
  - FOOT OPERATION [None]
  - PULMONARY INFARCTION [None]
  - IMPAIRED WORK ABILITY [None]
  - ANAEMIA [None]
  - FEAR [None]
  - MENORRHAGIA [None]
  - DEPRESSION [None]
  - VAGINAL INFECTION [None]
